FAERS Safety Report 7225883-1 (Version None)
Quarter: 2011Q1

REPORT INFORMATION
  Report Type: 
  Country: None (occurrence: None)
  Receive Date: 20110107
  Receipt Date: 20110107
  Transmission Date: 20110831
  Serious: Yes (Other)
  Sender: FDA-Public Use
  Company Number: None

PATIENT
  Sex: Female
  Weight: 68.0396 kg

DRUGS (1)
  1. OXYCONTIN [Suspect]
     Indication: PAIN
     Dosage: 60MG TID PO
     Route: 048
     Dates: start: 20010101, end: 20100101

REACTIONS (6)
  - PRODUCT FORMULATION ISSUE [None]
  - HYPERTENSION [None]
  - EYE SWELLING [None]
  - JAW DISORDER [None]
  - SWELLING [None]
  - LIP SWELLING [None]
